FAERS Safety Report 9478987 (Version 1)
Quarter: 2013Q3

REPORT INFORMATION
  Report Type: Report from Study
  Country: US (occurrence: US)
  Receive Date: 20130827
  Receipt Date: 20130827
  Transmission Date: 20140515
  Serious: Yes (Other)
  Sender: FDA-Public Use
  Company Number: US-ROCHE-1266169

PATIENT
  Age: 70 Year
  Sex: Female

DRUGS (14)
  1. XOLAIR [Suspect]
     Indication: PRODUCT USED FOR UNKNOWN INDICATION
     Route: 058
  2. XYZAL [Concomitant]
     Route: 048
  3. SINGULAIR [Concomitant]
     Route: 048
  4. ASPIRIN [Concomitant]
     Route: 048
  5. ARIMIDEX [Concomitant]
     Route: 048
  6. ALBUTEROL [Concomitant]
     Dosage: INHALE NEBULIZER SOLUTION VIA NEBULIZER 1-2 X DAY
     Route: 055
  7. PROVENTIL [Concomitant]
     Indication: ASTHMA
     Dosage: INHALE 2 PUFFS EVERY 4 HOURS AS NEEDED FOR ASTHMA
     Route: 055
  8. NASONEX [Concomitant]
     Dosage: 2 SPRAYS IN EACH NOSTRIL QD
     Route: 045
  9. PREDNISONE [Concomitant]
     Route: 048
  10. WARFARIN [Concomitant]
     Dosage: 10 MG ORALLY AS DIRECTED
     Route: 048
  11. SYMBICORT [Concomitant]
     Dosage: INHALE 2 PUFFS BID
     Route: 055
  12. LISINOPRIL/HCTZ [Concomitant]
     Dosage: 20/12.5 MG 1/2 TIMES A DAY
     Route: 048
  13. DALIRESP [Concomitant]
     Route: 048
  14. NEXIUM [Concomitant]
     Route: 048

REACTIONS (8)
  - Venous thrombosis [Unknown]
  - Jugular vein distension [Unknown]
  - Dyspnoea [Unknown]
  - Face oedema [Unknown]
  - Asthma [Unknown]
  - Pulmonary function test abnormal [Unknown]
  - Local swelling [Unknown]
  - Allergic sinusitis [Unknown]
